FAERS Safety Report 11194992 (Version 1)
Quarter: 2015Q2

REPORT INFORMATION
  Report Type: Spontaneous
  Country: US (occurrence: None)
  Receive Date: 20150615
  Receipt Date: 20150615
  Transmission Date: 20150821
  Serious: Yes (Other)
  Sender: FDA-Public Use
  Company Number: None

PATIENT
  Age: 39 Year
  Sex: Female
  Weight: 93.44 kg

DRUGS (1)
  1. TAXOL [Suspect]
     Active Substance: PACLITAXEL
     Indication: BREAST CANCER
     Route: 042
     Dates: start: 20150611, end: 20150611

REACTIONS (4)
  - Back pain [None]
  - Erythema [None]
  - Dyspnoea [None]
  - Unevaluable event [None]

NARRATIVE: CASE EVENT DATE: 20150611
